FAERS Safety Report 10042389 (Version 2)
Quarter: 2014Q1

REPORT INFORMATION
  Report Type: Spontaneous
  Country: US (occurrence: US)
  Receive Date: 20140327
  Receipt Date: 20140331
  Transmission Date: 20141002
  Serious: No
  Sender: FDA-Public Use
  Company Number: US-009507513-1403USA012434

PATIENT
  Age: 64 Year
  Sex: Female
  Weight: 90.7 kg

DRUGS (10)
  1. OXYTROL FOR WOMEN [Suspect]
     Indication: URINARY INCONTINENCE
     Dosage: 1 DF, Q4D
     Route: 062
     Dates: start: 201309, end: 201402
  2. OXYTROL FOR WOMEN [Suspect]
     Indication: MICTURITION URGENCY
  3. THEOPHYLLINE [Concomitant]
     Indication: ASTHMA
     Dosage: UNK, UNKNOWN
  4. PROVENTIL [Concomitant]
     Indication: ASTHMA
     Dosage: UNK, UNKNOWN
  5. ADVAIR [Concomitant]
     Indication: ASTHMA
     Dosage: UNK, UNKNOWN
  6. VERAPAMIL [Concomitant]
     Indication: HYPERTENSION
     Dosage: UNK, UNKNOWN
  7. LISINOPRIL [Concomitant]
     Indication: HYPERTENSION
     Dosage: UNK, UNKNOWN
  8. XARELTO [Concomitant]
     Indication: ATRIAL FIBRILLATION
     Dosage: UNK, UNKNOWN
  9. REQUIP [Concomitant]
     Indication: RESTLESS LEGS SYNDROME
     Dosage: UNK, UNKNOWN
  10. CELEXA [Concomitant]
     Indication: DEPRESSION
     Dosage: UNK, UNKNOWN

REACTIONS (2)
  - Application site rash [Recovering/Resolving]
  - Drug effect decreased [Unknown]
